FAERS Safety Report 8872597 (Version 1)
Quarter: 2012Q4

REPORT INFORMATION
  Report Type: 
  Country: US (occurrence: US)
  Receive Date: 20121026
  Receipt Date: 20121026
  Transmission Date: 20130627
  Serious: No
  Sender: FDA-Public Use
  Company Number: US-AMGEN-USASP2012050926

PATIENT
  Age: 57 Year
  Sex: Female
  Weight: 99.77 kg

DRUGS (9)
  1. ENBREL [Suspect]
     Indication: PRODUCT USED FOR UNKNOWN INDICATION
     Dosage: 50 mg, qwk
     Route: 058
  2. METHOTREXATE [Concomitant]
     Dosage: 2.5 mg, UNK
  3. K-DUR [Concomitant]
     Dosage: 20 mEq, UNK
  4. BUMETANIDE [Concomitant]
     Dosage: 2 mg, UNK
  5. COLESTIPOL [Concomitant]
     Dosage: 5 mg, UNK
  6. FOLIC ACID [Concomitant]
     Dosage: 1 mg, UNK
  7. TOPROL [Concomitant]
     Dosage: 50 mg, UNK
  8. ASPIRIN LOW [Concomitant]
     Dosage: 81 mg, UNK
  9. VITAMIN D3 [Concomitant]
     Dosage: UNK

REACTIONS (1)
  - Bronchitis [Unknown]
